FAERS Safety Report 19372657 (Version 2)
Quarter: 2021Q2

REPORT INFORMATION
  Report Type: Report from Study
  Country: US (occurrence: US)
  Receive Date: 20210603
  Receipt Date: 20210623
  Transmission Date: 20210717
  Serious: Yes (Other)
  Sender: FDA-Public Use
  Company Number: NVSC2021US122130

PATIENT
  Sex: Female

DRUGS (1)
  1. XIIDRA [Suspect]
     Active Substance: LIFITEGRAST
     Indication: DRY EYE
     Dosage: 1 DRP, BID
     Route: 065
     Dates: start: 20210514, end: 20210603

REACTIONS (4)
  - Neck injury [Unknown]
  - Spinal cord injury [Unknown]
  - Vision blurred [Unknown]
  - Eye irritation [Recovered/Resolved]
